FAERS Safety Report 6703235-8 (Version None)
Quarter: 2010Q2

REPORT INFORMATION
  Report Type: 
  Country: None (occurrence: None)
  Receive Date: 20100430
  Receipt Date: 20100419
  Transmission Date: 20101027
  Serious: Yes (Other)
  Sender: FDA-Public Use
  Company Number: CA-JNJFOC-20100405423

PATIENT
  Sex: Female
  Weight: 69 kg

DRUGS (4)
  1. REMICADE [Suspect]
     Indication: CROHN'S DISEASE
     Route: 042
  2. REMICADE [Suspect]
     Route: 042
  3. CALCIUM [Concomitant]
  4. MULTIVITE [Concomitant]

REACTIONS (2)
  - DIVERTICULITIS [None]
  - GASTROINTESTINAL INFECTION [None]
